FAERS Safety Report 9135508 (Version 2)
Quarter: 2013Q4

REPORT INFORMATION
  Report Type: Spontaneous
  Country: GB (occurrence: GB)
  Receive Date: 20130304
  Receipt Date: 20131111
  Transmission Date: 20140711
  Serious: Yes (Other)
  Sender: FDA-Public Use
  Company Number: PHHY2013GB018220

PATIENT
  Age: 83 Year
  Sex: Female

DRUGS (11)
  1. SIMVASTATIN [Suspect]
     Indication: BLOOD CHOLESTEROL INCREASED
     Dosage: 40 MG, QD
     Route: 048
  2. MIRTAZAPINE [Suspect]
     Indication: DEPRESSION
     Dosage: 30 MG, QD
     Route: 048
  3. FLUVOXAMINE [Suspect]
     Indication: DEPRESSION
     Route: 048
  4. BISOPROLOL [Concomitant]
  5. CLOPIDOGREL [Concomitant]
     Dosage: UNK UKN, UNK
  6. RAMIPRIL [Concomitant]
     Dosage: UNK UKN, UNK
  7. ASPIRIN [Concomitant]
     Dosage: UNK UKN, UNK
  8. LANSOPRAZOLE [Concomitant]
     Dosage: UNK UKN, UNK
  9. AMLODIPINE [Concomitant]
     Dosage: UNK UKN, UNK
  10. CARBOCISTEINE [Concomitant]
     Dosage: UNK UKN, UNK
  11. FUROSEMIDE [Concomitant]
     Dosage: UNK UKN, UNK

REACTIONS (1)
  - Interstitial lung disease [Recovering/Resolving]
